FAERS Safety Report 6152481-3 (Version None)
Quarter: 2009Q2

REPORT INFORMATION
  Report Type: 
  Country: None (occurrence: None)
  Receive Date: 20090413
  Receipt Date: 20090403
  Transmission Date: 20091009
  Serious: Yes (Other)
  Sender: FDA-Public Use
  Company Number: PHEH2008US02534

PATIENT
  Sex: Male

DRUGS (13)
  1. AREDIA [Suspect]
  2. ZOMETA [Suspect]
  3. ACCUPRIL [Concomitant]
     Dosage: 10 MG DAILY
  4. PROPULSID [Concomitant]
  5. PREVACID [Concomitant]
  6. CARDIZEM CD [Concomitant]
     Dosage: 240 MG DAILY
  7. COZAAR [Concomitant]
  8. DIGOXIN [Concomitant]
  9. CARDIKET [Concomitant]
  10. ASPIRIN [Concomitant]
  11. HYDROCHLOROTHIAZIDE [Concomitant]
  12. THALIDOMIDE [Concomitant]
     Indication: MULTIPLE MYELOMA
  13. DEXAMETHASONE 4MG TAB [Concomitant]

REACTIONS (26)
  - ANAEMIA [None]
  - ANXIETY [None]
  - ATRIAL FIBRILLATION [None]
  - BLOOD CALCIUM DECREASED [None]
  - BLOOD IRON DECREASED [None]
  - BONE DISORDER [None]
  - BUNDLE BRANCH BLOCK RIGHT [None]
  - CARDIOMEGALY [None]
  - CEREBROVASCULAR ACCIDENT [None]
  - CHEST DISCOMFORT [None]
  - DEFORMITY [None]
  - EMOTIONAL DISTRESS [None]
  - GINGIVAL SWELLING [None]
  - HEART RATE INCREASED [None]
  - HYPERTENSION [None]
  - INFECTION [None]
  - LABILE HYPERTENSION [None]
  - MULTIPLE MYELOMA [None]
  - MYOCARDIAL ISCHAEMIA [None]
  - OBESITY [None]
  - OSTEOARTHRITIS [None]
  - OSTEONECROSIS [None]
  - PAIN [None]
  - PALPITATIONS [None]
  - PEPTIC ULCER [None]
  - TACHYCARDIA [None]
